FAERS Safety Report 6264185-7 (Version None)
Quarter: 2009Q3

REPORT INFORMATION
  Report Type: 
  Country: None (occurrence: None)
  Receive Date: 20090710
  Receipt Date: 20090703
  Transmission Date: 20100115
  Serious: Yes (Hospitalization)
  Sender: FDA-Public Use
  Company Number: FR-TEVA-201129USA

PATIENT
  Sex: Female

DRUGS (11)
  1. BISELECT [Suspect]
     Route: 048
  2. COLCHIMAX [Suspect]
     Indication: GOUT
     Dosage: 3DOSE FORMS/D, 2 DOSE FORMS/D
     Route: 048
     Dates: start: 20081031, end: 20081102
  3. ATORVASTATIN CALCIUM [Suspect]
     Route: 048
  4. FUROSEMIDE [Suspect]
     Dosage: 60 MG 1 DAY
     Route: 048
  5. TIANEPTINE [Suspect]
     Dosage: 3 DOSE FORMS/ 1 DOSAGE FOMS
     Route: 048
  6. ZOLPIDEM [Suspect]
     Dosage: 1.5 DOSAGE FORMS
     Route: 048
  7. RAMIPRIL [Suspect]
     Route: 048
     Dates: end: 20081106
  8. BUDESONIDE [Suspect]
     Dosage: 2 DOSAGE FORMS
     Route: 055
  9. TIOTROPIUM BROMIDE [Suspect]
     Dosage: 1 DOSAGE FORM
     Route: 055
  10. WARFARIN SODIUM [Suspect]
     Dates: end: 20081106
  11. POTASSIUM CHLORIDE [Suspect]
     Dosage: 1 DOSAGE FORM
     Route: 048
     Dates: end: 20081114

REACTIONS (5)
  - DEHYDRATION [None]
  - DIARRHOEA [None]
  - FOOD INTOLERANCE [None]
  - NAUSEA [None]
  - VOMITING [None]
